FAERS Safety Report 12739671 (Version 3)
Quarter: 2021Q2

REPORT INFORMATION
  Report Type: Spontaneous
  Country: TW (occurrence: TW)
  Receive Date: 20160913
  Receipt Date: 20210628
  Transmission Date: 20210716
  Serious: Yes (Hospitalization)
  Sender: FDA-Public Use
  Company Number: TW-SA-2016SA164261

PATIENT
  Age: 31 Year
  Sex: Female
  Weight: 47 kg

DRUGS (20)
  1. DIMETHICONE. [Concomitant]
     Active Substance: DIMETHICONE
     Dosage: 80 MG
     Route: 048
     Dates: start: 20160728, end: 20160728
  2. OXYTOCIN. [Concomitant]
     Active Substance: OXYTOCIN
     Indication: LABOUR INDUCTION
     Dosage: 20 IU, PRN
     Route: 042
     Dates: start: 20160818, end: 20160819
  3. METHYLERGOMETRINE MALEATE [Concomitant]
     Active Substance: METHYLERGONOVINE MALEATE
     Indication: POSTPARTUM HAEMORRHAGE
     Dosage: 0.2 G, PRN
     Route: 030
     Dates: start: 20160818, end: 20160819
  4. MYOZYME [Suspect]
     Active Substance: ALGLUCOSIDASE ALFA
     Indication: GLYCOGEN STORAGE DISEASE TYPE II
     Dosage: 900 MG,QOW
     Route: 041
     Dates: start: 20110715
  5. ACETAMINOPHEN. [Concomitant]
     Active Substance: ACETAMINOPHEN
     Dosage: 500 MG, PRN
     Route: 048
     Dates: start: 20160819, end: 20160819
  6. MAGNESIUM OXIDE. [Concomitant]
     Active Substance: MAGNESIUM OXIDE
     Indication: CONSTIPATION
     Dosage: 500 MG, TID
     Route: 048
     Dates: start: 20160514, end: 20160605
  7. NAPROXEN. [Concomitant]
     Active Substance: NAPROXEN
     Indication: WOUND COMPLICATION
     Dosage: 250 MG,TID
     Route: 048
     Dates: start: 20160822, end: 20160825
  8. CEFAZOLIN [Concomitant]
     Active Substance: CEFAZOLIN
     Indication: PROPHYLAXIS
     Dosage: 1000 MG,Q8H
     Route: 042
     Dates: start: 20160818, end: 20160819
  9. MAGNESIUM OXIDE. [Concomitant]
     Active Substance: MAGNESIUM OXIDE
     Dosage: 500 MG, BID
     Route: 048
     Dates: start: 20160605, end: 20160819
  10. LACTULOSE. [Concomitant]
     Active Substance: LACTULOSE
     Dosage: 9000 MG, PRN
     Route: 048
     Dates: start: 20160515, end: 20160819
  11. MYOZYME [Suspect]
     Active Substance: ALGLUCOSIDASE ALFA
     Dosage: 950 MG, QOW
     Route: 041
     Dates: start: 20160318
  12. ACETAMINOPHEN. [Concomitant]
     Active Substance: ACETAMINOPHEN
     Indication: WOUND COMPLICATION
     Dosage: 500 MG
     Route: 048
     Dates: start: 20160819, end: 20160819
  13. ACETAMINOPHEN. [Concomitant]
     Active Substance: ACETAMINOPHEN
     Dosage: 500 MG, QID
     Route: 048
     Dates: start: 20160820, end: 20160822
  14. DEXTROSE. [Concomitant]
     Active Substance: DEXTROSE
     Indication: GLUCOSE TOLERANCE TEST
     Dosage: 50 %
     Route: 042
     Dates: start: 20160610, end: 20160610
  15. LACTULOSE. [Concomitant]
     Active Substance: LACTULOSE
     Indication: CONSTIPATION
     Dosage: 9000 MG, TID
     Route: 048
     Dates: start: 20160515, end: 20160819
  16. BETAMETHASONE SODIUM PHOSPHATE [Concomitant]
     Active Substance: BETAMETHASONE SODIUM PHOSPHATE
     Indication: PROPHYLAXIS
     Dosage: 12 MG,QD
     Route: 030
     Dates: start: 20160530, end: 20160531
  17. DIMETHICONE. [Concomitant]
     Active Substance: DIMETHICONE
     Indication: ABDOMINAL DISTENSION
     Dosage: 80 MG,TID
     Route: 048
     Dates: start: 20160514, end: 20160819
  18. ACETAMINOPHEN. [Concomitant]
     Active Substance: ACETAMINOPHEN
     Dosage: 500 MG, TID
     Route: 048
     Dates: start: 20160819, end: 20160819
  19. CEFALEXIN [Concomitant]
     Active Substance: CEPHALEXIN
     Indication: PROPHYLAXIS
     Dosage: 250 MG, TID
     Route: 048
     Dates: start: 20160819, end: 20160819
  20. ERGOMETRINE MALEATE [Concomitant]
     Active Substance: ERGONOVINE MALEATE
     Indication: POSTPARTUM HAEMORRHAGE
     Dosage: 0.2 MG, TID
     Route: 048
     Dates: start: 20160818, end: 20160821

REACTIONS (6)
  - Premature labour [Recovered/Resolved]
  - Abdominal pain lower [Recovered/Resolved]
  - Pre-eclampsia [Unknown]
  - Preterm premature rupture of membranes [Unknown]
  - Dysuria [Recovered/Resolved]
  - Exposure during pregnancy [Unknown]

NARRATIVE: CASE EVENT DATE: 2016
